FAERS Safety Report 20322813 (Version 1)
Quarter: 2022Q1

REPORT INFORMATION
  Report Type: Spontaneous
  Country: US (occurrence: None)
  Receive Date: 20220110
  Receipt Date: 20220110
  Transmission Date: 20220423
  Serious: No
  Sender: FDA-Public Use
  Company Number: None

PATIENT
  Age: 60 Year
  Sex: Male
  Weight: 113.4 kg

DRUGS (3)
  1. PRIVIGEN [Suspect]
     Active Substance: HUMAN IMMUNOGLOBULIN G
  2. Diphenhydramine 25MG CAPS [Concomitant]
  3. Acetaminophen 325MG TAB [Concomitant]

REACTIONS (5)
  - Infusion related reaction [None]
  - Erythema [None]
  - Rash [None]
  - Rash [None]
  - Rash [None]

NARRATIVE: CASE EVENT DATE: 20220105
